FAERS Safety Report 12569638 (Version 1)
Quarter: 2016Q3

REPORT INFORMATION
  Report Type: Spontaneous
  Country: US (occurrence: US)
  Receive Date: 20160719
  Receipt Date: 20160719
  Transmission Date: 20161109
  Serious: No
  Sender: FDA-Public Use
  Company Number: US-PERRIGO-15US011678

PATIENT
  Age: 36 Year
  Sex: Female
  Weight: 97.52 kg

DRUGS (1)
  1. POLYETHYLENE GLYCOL 3350. [Suspect]
     Active Substance: POLYETHYLENE GLYCOL 3350
     Indication: CONSTIPATION
     Dosage: 17 G, SINGLE
     Route: 048
     Dates: start: 20151101, end: 20151101

REACTIONS (1)
  - Flatulence [Recovered/Resolved]

NARRATIVE: CASE EVENT DATE: 20151101
